FAERS Safety Report 21862007 (Version 3)
Quarter: 2023Q1

REPORT INFORMATION
  Report Type: Report from Study
  Country: MX (occurrence: MX)
  Receive Date: 20230113
  Receipt Date: 20230322
  Transmission Date: 20230417
  Serious: Yes (Hospitalization)
  Sender: FDA-Public Use
  Company Number: MX-SEATTLE GENETICS-2022SGN10604

PATIENT
  Age: 80 Year
  Sex: Female
  Weight: 48 kg

DRUGS (2)
  1. TISOTUMAB VEDOTIN [Suspect]
     Active Substance: TISOTUMAB VEDOTIN
     Indication: Cervix cancer metastatic
     Dosage: 2.0 MG/KG, Q3WEEKS
     Route: 042
     Dates: start: 20220816
  2. METFORMIN [Concomitant]
     Active Substance: METFORMIN HYDROCHLORIDE
     Indication: Type 2 diabetes mellitus
     Dosage: 850 MG
     Dates: start: 2004

REACTIONS (1)
  - Hyponatraemia [Not Recovered/Not Resolved]

NARRATIVE: CASE EVENT DATE: 20221107
